FAERS Safety Report 5595794-6 (Version None)
Quarter: 2008Q1

REPORT INFORMATION
  Report Type: 
  Country: None (occurrence: None)
  Receive Date: 20080118
  Receipt Date: 20080110
  Transmission Date: 20080703
  Serious: Yes (Hospitalization)
  Sender: FDA-Public Use
  Company Number: B0503964A

PATIENT
  Age: 63 Year
  Sex: Male

DRUGS (9)
  1. DEROXAT [Suspect]
     Indication: DRUG USE FOR UNKNOWN INDICATION
     Dosage: 20MG PER DAY
     Route: 048
     Dates: start: 20071129, end: 20071204
  2. VFEND [Suspect]
     Route: 048
     Dates: start: 20071127, end: 20071204
  3. INEXIUM [Suspect]
     Indication: DRUG USE FOR UNKNOWN INDICATION
     Dosage: 20MG PER DAY
     Route: 048
  4. ZYVOX [Suspect]
     Route: 048
     Dates: start: 20071130, end: 20071204
  5. KARDEGIC [Concomitant]
  6. LEVOTHYROX [Concomitant]
  7. PERFALGAN [Concomitant]
  8. STILNOX [Concomitant]
  9. VALACYCLOVIR [Concomitant]

REACTIONS (9)
  - BLOOD ALKALINE PHOSPHATASE INCREASED [None]
  - BLOOD BILIRUBIN INCREASED [None]
  - CHOLESTASIS [None]
  - DRUG INTERACTION [None]
  - ECZEMA [None]
  - GAMMA-GLUTAMYLTRANSFERASE INCREASED [None]
  - RASH MORBILLIFORM [None]
  - TOXIC SKIN ERUPTION [None]
  - TRANSAMINASES INCREASED [None]
